FAERS Safety Report 16882159 (Version 1)
Quarter: 2019Q4

REPORT INFORMATION
  Report Type: Spontaneous
  Country: US (occurrence: US)
  Receive Date: 20191003
  Receipt Date: 20191003
  Transmission Date: 20200122
  Serious: Yes (Other)
  Sender: FDA-Public Use
  Company Number: None

PATIENT
  Age: 65 Year
  Sex: Female
  Weight: 79.2 kg

DRUGS (1)
  1. KISQALI [Suspect]
     Active Substance: RIBOCICLIB
     Indication: BREAST CANCER
     Dosage: ?          OTHER FREQUENCY:DAILY X 3 WKS;?
     Route: 048
     Dates: start: 20190905, end: 20191003

REACTIONS (3)
  - Therapy cessation [None]
  - Adverse drug reaction [None]
  - Fatigue [None]

NARRATIVE: CASE EVENT DATE: 20191003
